FAERS Safety Report 4801131-4 (Version None)
Quarter: 2005Q4

REPORT INFORMATION
  Report Type: 
  Country: None (occurrence: None)
  Receive Date: 20051017
  Receipt Date: 20051013
  Transmission Date: 20060501
  Serious: Yes (Death, Hospitalization)
  Sender: FDA-Public Use
  Company Number: PHHO2005JP16210

PATIENT
  Age: 80 Year
  Sex: Female
  Weight: 53 kg

DRUGS (6)
  1. DIOVAN [Suspect]
     Indication: HYPERTENSION
     Dosage: 40 MG, QD
     Route: 048
     Dates: start: 20031006
  2. AMARYL [Suspect]
     Indication: DIABETES MELLITUS
     Dosage: 2 MG
     Route: 048
     Dates: start: 20030901, end: 20050216
  3. AMARYL [Suspect]
     Dosage: 1 MG
     Route: 048
     Dates: start: 20050217
  4. WARFARIN [Suspect]
     Dosage: 3 MG
     Route: 048
  5. ASPIRIN [Concomitant]
     Dates: end: 20050216
  6. CYTOTEC [Concomitant]
     Indication: GASTROINTESTINAL MUCOSAL DISORDER

REACTIONS (3)
  - BACK PAIN [None]
  - CARDIO-RESPIRATORY ARREST [None]
  - MALAISE [None]
